FAERS Safety Report 10104124 (Version 2)
Quarter: 2014Q4

REPORT INFORMATION
  Report Type: Other
  Country: US (occurrence: US)
  Receive Date: 20140424
  Receipt Date: 20141024
  Transmission Date: 20150528
  Serious: Yes (Hospitalization, Other)
  Sender: FDA-Public Use
  Company Number: US-GSKPPD-2014GSK005237

PATIENT
  Age: 64 Year
  Sex: Male

DRUGS (7)
  1. AVAPRO [Concomitant]
     Active Substance: IRBESARTAN
  2. AVANDAMET [Suspect]
     Active Substance: METFORMIN HYDROCHLORIDE\ROSIGLITAZONE MALEATE
     Indication: DIABETES MELLITUS
     Dosage: 2MG/500MG??DATE OF AVANDAMET USE COULD NOT BE CONFIRMED IN RECORDS REVIEWED
     Route: 048
  3. PLAVIX [Concomitant]
     Active Substance: CLOPIDOGREL BISULFATE
  4. ASPIRIN. [Concomitant]
     Active Substance: ASPIRIN
  5. ALTACE [Concomitant]
     Active Substance: RAMIPRIL
  6. AVANDIA [Suspect]
     Active Substance: ROSIGLITAZONE MALEATE
     Indication: DIABETES MELLITUS
     Dosage: DATE OF AVANDIA USE COULD NOT BE CONFIRMED IN RECORDS REVIEWED.
     Route: 048
  7. BUMETANIDE. [Concomitant]
     Active Substance: BUMETANIDE

REACTIONS (3)
  - Myocardial infarction [Recovered/Resolved]
  - Cerebrovascular accident [Unknown]
  - Cardiac failure congestive [Recovered/Resolved]

NARRATIVE: CASE EVENT DATE: 20050821
